FAERS Safety Report 12816580 (Version 1)
Quarter: 2016Q4

REPORT INFORMATION
  Report Type: Spontaneous
  Country: US (occurrence: US)
  Receive Date: 20161006
  Receipt Date: 20161006
  Transmission Date: 20170207
  Serious: No
  Sender: FDA-Public Use
  Company Number: US-NOVEN PHARMACEUTICALS, INC.-US2016000353

PATIENT

DRUGS (3)
  1. TETRACYCLINE [Concomitant]
     Active Substance: TETRACYCLINE
  2. COMBIPATCH [Suspect]
     Active Substance: ESTRADIOL\NORETHINDRONE ACETATE
     Indication: MENOPAUSAL SYMPTOMS
     Dosage: 50/140 MG, UNKNOWN
     Route: 062
     Dates: start: 2014
  3. CELEBREX [Concomitant]
     Active Substance: CELECOXIB

REACTIONS (5)
  - Insomnia [Unknown]
  - Drug ineffective [Unknown]
  - Off label use [Not Recovered/Not Resolved]
  - Product quality issue [Unknown]
  - Product adhesion issue [Unknown]

NARRATIVE: CASE EVENT DATE: 2014
